FAERS Safety Report 9591704 (Version 1)
Quarter: 2013Q4

REPORT INFORMATION
  Report Type: Spontaneous
  Country: US (occurrence: US)
  Receive Date: 20131003
  Receipt Date: 20131003
  Transmission Date: 20140711
  Serious: No
  Sender: FDA-Public Use
  Company Number: US-AMGEN-USASP2012082971

PATIENT
  Age: 50 Year
  Sex: Female

DRUGS (1)
  1. ENBREL [Suspect]
     Indication: RHEUMATOID ARTHRITIS
     Dosage: 50 MG, QWK
     Route: 058
     Dates: start: 201212, end: 201301

REACTIONS (7)
  - Muscle spasms [Unknown]
  - Hypoaesthesia [Unknown]
  - Adverse drug reaction [Unknown]
  - Sleep disorder [Unknown]
  - Crying [Unknown]
  - Nervous system disorder [Unknown]
  - Paraesthesia [Unknown]
